FAERS Safety Report 25066274 (Version 2)
Quarter: 2025Q1

REPORT INFORMATION
  Report Type: Spontaneous
  Country: US (occurrence: US)
  Receive Date: 20250312
  Receipt Date: 20250324
  Transmission Date: 20250408
  Serious: Yes (Other)
  Sender: TEVA
  Company Number: US-TEVA-VS-3306210

PATIENT
  Age: 48 Year
  Sex: Male

DRUGS (10)
  1. ACETAZOLAMIDE [Suspect]
     Active Substance: ACETAZOLAMIDE
     Indication: Central serous chorioretinopathy
     Route: 065
  2. AFLIBERCEPT [Concomitant]
     Active Substance: AFLIBERCEPT
     Indication: Central serous chorioretinopathy
     Route: 050
  3. PREDNISONE [Concomitant]
     Active Substance: PREDNISONE
     Indication: Central serous chorioretinopathy
     Route: 048
  4. ADALIMUMAB [Suspect]
     Active Substance: ADALIMUMAB
     Indication: Central serous chorioretinopathy
     Dosage: TWICE WEEKLY
     Route: 065
  5. BEVACIZUMAB [Concomitant]
     Active Substance: BEVACIZUMAB
     Indication: Central serous chorioretinopathy
     Route: 050
  6. METHOTREXATE [Suspect]
     Active Substance: METHOTREXATE
     Indication: Central serous chorioretinopathy
     Route: 058
  7. SPIRONOLACTONE [Suspect]
     Active Substance: SPIRONOLACTONE
     Indication: Central serous chorioretinopathy
     Route: 065
  8. MYCOPHENOLATE MOFETIL [Suspect]
     Active Substance: MYCOPHENOLATE MOFETIL
     Indication: Central serous chorioretinopathy
     Route: 065
  9. PEGINTERFERON ALFA-2A [Suspect]
     Active Substance: PEGINTERFERON ALFA-2A
     Indication: Central serous chorioretinopathy
     Route: 065
  10. INTERFERON ALFA-2B [Suspect]
     Active Substance: INTERFERON ALFA-2B
     Indication: Central serous chorioretinopathy
     Route: 058

REACTIONS (3)
  - Drug ineffective [Unknown]
  - Treatment noncompliance [Unknown]
  - Influenza like illness [Unknown]
